FAERS Safety Report 7493925-4 (Version None)
Quarter: 2011Q2

REPORT INFORMATION
  Report Type: 
  Country: None (occurrence: None)
  Receive Date: 20110520
  Receipt Date: 20110518
  Transmission Date: 20111010
  Serious: Yes (Disabling)
  Sender: FDA-Public Use
  Company Number: EC-ROCHE-777941

PATIENT
  Sex: Female
  Weight: 143 kg

DRUGS (2)
  1. BONIVA [Suspect]
     Indication: OSTEOPOROSIS
     Route: 048
     Dates: start: 20101018
  2. OMEZOL [Concomitant]
     Indication: GASTRITIS
     Dates: start: 20040101, end: 20070101

REACTIONS (3)
  - DIZZINESS [None]
  - MOUTH HAEMORRHAGE [None]
  - MELAENA [None]
